FAERS Safety Report 11497683 (Version 2)
Quarter: 2015Q3

REPORT INFORMATION
  Report Type: Spontaneous
  Country: US (occurrence: US)
  Receive Date: 20150911
  Receipt Date: 20150922
  Transmission Date: 20151125
  Serious: Yes (Other)
  Sender: FDA-Public Use
  Company Number: US-ASTRAZENECA-2015SE86898

PATIENT
  Age: 53 Year
  Sex: Male
  Weight: 105.2 kg

DRUGS (24)
  1. NEXIUM [Suspect]
     Active Substance: ESOMEPRAZOLE MAGNESIUM
     Indication: GASTRITIS
     Route: 048
     Dates: start: 2005, end: 201508
  2. NEXIUM [Suspect]
     Active Substance: ESOMEPRAZOLE MAGNESIUM
     Indication: GASTRITIS
     Route: 048
     Dates: start: 201508
  3. IPRATROPIUM BROMIDE. [Concomitant]
     Active Substance: IPRATROPIUM BROMIDE
     Indication: SMOKING CESSATION THERAPY
     Dosage: 0.02 PERCENT/0.5 MG, THREE TIMES A DAY
     Route: 055
  4. OXYGEN. [Concomitant]
     Active Substance: OXYGEN
  5. LOSARTAN POTASSIUM. [Concomitant]
     Active Substance: LOSARTAN POTASSIUM
     Indication: ANTICOAGULANT THERAPY
     Route: 048
     Dates: start: 2010
  6. PHENYTOIN. [Concomitant]
     Active Substance: PHENYTOIN
     Indication: SEIZURE
     Route: 048
     Dates: start: 2000
  7. HYDROCODONE BITARTRATE AND ACETAMINOPHEN [Concomitant]
     Active Substance: ACETAMINOPHEN\HYDROCODONE BITARTRATE
     Indication: BACK PAIN
     Dosage: 7.5MG/225MG EVERY 8 HOURS AS NEEDED
     Route: 048
  8. PHENYTOIN. [Concomitant]
     Active Substance: PHENYTOIN
     Indication: SEIZURE
     Route: 048
     Dates: start: 2000
  9. IPRATROPIUM BROMIDE. [Concomitant]
     Active Substance: IPRATROPIUM BROMIDE
     Indication: LUNG DISORDER
     Dosage: 0.02 PERCENT/0.5 MG, THREE TIMES A DAY
     Route: 055
  10. NEXIUM [Suspect]
     Active Substance: ESOMEPRAZOLE MAGNESIUM
     Indication: GASTROOESOPHAGEAL REFLUX DISEASE
     Route: 048
     Dates: start: 2005, end: 201508
  11. PHENYTOIN. [Concomitant]
     Active Substance: PHENYTOIN
     Indication: SEIZURE
     Route: 048
     Dates: start: 2000
  12. NEXIUM [Suspect]
     Active Substance: ESOMEPRAZOLE MAGNESIUM
     Indication: GASTROOESOPHAGEAL REFLUX DISEASE
     Dosage: 40 MG DAILY, ESMOPRAZOLE MAGNESIUM (GENERIC)
     Route: 048
     Dates: start: 201508, end: 201508
  13. NEXIUM [Suspect]
     Active Substance: ESOMEPRAZOLE MAGNESIUM
     Indication: GASTRITIS
     Dosage: 40 MG DAILY, ESMOPRAZOLE MAGNESIUM (GENERIC)
     Route: 048
     Dates: start: 201508, end: 201508
  14. NEXIUM [Suspect]
     Active Substance: ESOMEPRAZOLE MAGNESIUM
     Indication: GASTROOESOPHAGEAL REFLUX DISEASE
     Route: 048
     Dates: start: 201508
  15. METOPROLOL SUCCINATE. [Suspect]
     Active Substance: METOPROLOL SUCCINATE
     Indication: HYPERTENSION
     Route: 048
  16. TAMSULOSIN HYDROCHLORIDE. [Concomitant]
     Active Substance: TAMSULOSIN HYDROCHLORIDE
     Indication: BLADDER DISORDER
     Route: 048
     Dates: start: 2002
  17. ASPIRIN. [Concomitant]
     Active Substance: ASPIRIN
     Route: 048
  18. FINASTERIDE. [Concomitant]
     Active Substance: FINASTERIDE
     Indication: PROSTATE CANCER
     Route: 048
  19. COLCHICINE. [Concomitant]
     Active Substance: COLCHICINE
     Indication: GOUT
     Route: 048
     Dates: start: 20150604
  20. NEXIUM [Suspect]
     Active Substance: ESOMEPRAZOLE MAGNESIUM
     Indication: GASTRITIS
     Dosage: 40 MG DAILY, ESMOPRAZOLE MAGNESIUM (GENERIC)
     Route: 048
     Dates: start: 201508
  21. ALBUTEROL. [Concomitant]
     Active Substance: ALBUTEROL
     Indication: LUNG DISORDER
     Route: 055
  22. ALBUTEROL. [Concomitant]
     Active Substance: ALBUTEROL
     Indication: SMOKING CESSATION THERAPY
     Route: 055
  23. NEXIUM [Suspect]
     Active Substance: ESOMEPRAZOLE MAGNESIUM
     Indication: GASTROOESOPHAGEAL REFLUX DISEASE
     Dosage: 40 MG DAILY, ESMOPRAZOLE MAGNESIUM (GENERIC)
     Route: 048
     Dates: start: 201508
  24. PREDNISONE. [Concomitant]
     Active Substance: PREDNISONE
     Indication: GOUT
     Route: 048
     Dates: start: 2000

REACTIONS (21)
  - Epilepsy [Unknown]
  - Sleep apnoea syndrome [Unknown]
  - Back disorder [Unknown]
  - Seizure [Unknown]
  - Obesity [Unknown]
  - Nausea [Unknown]
  - Drug ineffective [Unknown]
  - Gouty arthritis [Unknown]
  - Abdominal pain upper [Unknown]
  - Chronic obstructive pulmonary disease [Unknown]
  - Hypertension [Unknown]
  - Product use issue [Unknown]
  - Polycythaemia [Unknown]
  - Fall [Unknown]
  - Back pain [Unknown]
  - Peripheral arterial occlusive disease [Unknown]
  - Gastritis [Unknown]
  - Pain [Unknown]
  - Insomnia [Unknown]
  - Benign prostatic hyperplasia [Unknown]
  - Feeding disorder [Unknown]

NARRATIVE: CASE EVENT DATE: 2000
